FAERS Safety Report 15419950 (Version 1)
Quarter: 2018Q3

REPORT INFORMATION
  Report Type: Spontaneous
  Country: US (occurrence: US)
  Receive Date: 20180924
  Receipt Date: 20180924
  Transmission Date: 20181010
  Serious: No
  Sender: FDA-Public Use
  Company Number: US-ADAMAS PHARMA, LLC-2018ADA01354

PATIENT
  Sex: Female

DRUGS (5)
  1. PROPANONOL [Concomitant]
  2. GOCOVRI [Suspect]
     Active Substance: AMANTADINE
     Dosage: UNK
     Route: 048
     Dates: start: 20180206
  3. SELEGILINE [Concomitant]
     Active Substance: SELEGILINE
  4. GOCOVRI [Suspect]
     Active Substance: AMANTADINE
     Indication: PARKINSON^S DISEASE
     Dosage: UNK
     Route: 048
     Dates: start: 20180130, end: 20180205
  5. VITAMIN D [Concomitant]
     Active Substance: CHOLECALCIFEROL

REACTIONS (1)
  - Dyskinesia [Recovered/Resolved]

NARRATIVE: CASE EVENT DATE: 2018
